FAERS Safety Report 23520248 (Version 1)
Quarter: 2024Q1

REPORT INFORMATION
  Report Type: Report from Study
  Country: US (occurrence: US)
  Receive Date: 20240214
  Receipt Date: 20240214
  Transmission Date: 20240410
  Serious: Yes (Other)
  Sender: FDA-Public Use
  Company Number: US-CIPLA LTD.-2024US01384

PATIENT

DRUGS (1)
  1. SEVELAMER [Suspect]
     Active Substance: SEVELAMER
     Indication: End stage renal disease
     Dosage: 4,800 MG/DAY
     Route: 065

REACTIONS (2)
  - Large intestinal stenosis [Not Recovered/Not Resolved]
  - Large intestinal ulcer [Recovered/Resolved]
